FAERS Safety Report 4827989-0 (Version None)
Quarter: 2005Q4

REPORT INFORMATION
  Report Type: 
  Country: None (occurrence: None)
  Receive Date: 20051110
  Receipt Date: 20051028
  Transmission Date: 20060501
  Serious: Yes (Hospitalization)
  Sender: FDA-Public Use
  Company Number: 2005BI019858

PATIENT
  Age: 44 Year
  Sex: Female

DRUGS (1)
  1. AVONEX [Suspect]
     Indication: MULTIPLE SCLEROSIS
     Dosage: IM
     Route: 030
     Dates: start: 20041210

REACTIONS (5)
  - ANXIETY [None]
  - COGNITIVE DISORDER [None]
  - COORDINATION ABNORMAL [None]
  - DEPRESSION [None]
  - SUICIDAL IDEATION [None]
